FAERS Safety Report 8522467 (Version 7)
Quarter: 2013Q2

REPORT INFORMATION
  Report Type: Report from Study
  Country: JP (occurrence: JP)
  Receive Date: 20120419
  Receipt Date: 20130524
  Transmission Date: 20140414
  Serious: Yes (Hospitalization, Disabling, Other)
  Sender: FDA-Public Use
  Company Number: JP-ABBOTT-12P-087-0925738-00

PATIENT
  Age: 73 Year
  Sex: Male
  Weight: 52 kg

DRUGS (17)
  1. HUMIRA 40 MG/ 0.8 ML PRE-FILLED SYRINGE [Suspect]
     Indication: RHEUMATOID ARTHRITIS
     Route: 058
     Dates: start: 20100720, end: 20111025
  2. HUMIRA 40 MG/ 0.8 ML PRE-FILLED SYRINGE [Suspect]
     Dates: start: 20111108, end: 20120214
  3. HUMIRA 40 MG/ 0.8 ML PRE-FILLED SYRINGE [Suspect]
     Dates: start: 20120228, end: 20120228
  4. HUMIRA 40 MG/ 0.8 ML PRE-FILLED SYRINGE [Suspect]
     Dates: start: 20120327
  5. TIZANIDINE HYDROCHLORIDE [Suspect]
     Indication: SPINAL OSTEOARTHRITIS
     Dosage: 2 MG DAILY DOSE
     Dates: start: 20100720
  6. ZESTROMIN [Suspect]
     Indication: INSOMNIA
     Dosage: 0.25 MG DAILY DOSE
     Dates: start: 20100720
  7. PRORENAL [Suspect]
     Indication: LUMBAR SPINAL STENOSIS
     Dosage: 10 MCG DAILY DOSE
     Dates: start: 20110201
  8. NEUROTROPIN [Suspect]
     Indication: CERVICOBRACHIAL SYNDROME
     Dates: start: 20111122
  9. PROGRAF [Suspect]
     Indication: RHEUMATOID ARTHRITIS
     Dosage: 1 MG DAILY DOSE
     Dates: start: 20101207, end: 20111107
  10. PRONON [Suspect]
     Indication: PRODUCT USED FOR UNKNOWN INDICATION
     Dosage: 80 MG DAILY
     Dates: start: 20100720
  11. VASOLAN [Suspect]
     Indication: PRODUCT USED FOR UNKNOWN INDICATION
     Dates: start: 20100720
  12. ALEROFF [Suspect]
     Indication: ALLERGY PROPHYLAXIS
     Dosage: 20 MG DAILY DOSE
     Dates: start: 20100720, end: 20110523
  13. OMEPRAL [Suspect]
     Indication: PRODUCT USED FOR UNKNOWN INDICATION
     Dosage: 20 MG DAILY DOSE
     Dates: start: 20100720
  14. ADEFURONIC-L [Suspect]
     Indication: RHEUMATOID ARTHRITIS
     Dosage: 37.5 MG DAILY DOSE
     Dates: start: 20111122, end: 20120131
  15. NABOAL SR [Suspect]
     Indication: PRODUCT USED FOR UNKNOWN INDICATION
  16. SHAKUYAKUKANZOTO [Suspect]
     Indication: MUSCLE SPASMS
     Dosage: 2.5 GM DAILY DOSE
     Dates: start: 20110524, end: 201108
  17. LYRICA [Suspect]
     Indication: SCIATICA
     Dosage: 50 MG DAILY DOSE
     Dates: start: 20110903, end: 20111121

REACTIONS (6)
  - Nephrotic syndrome [Not Recovered/Not Resolved]
  - Pleural effusion [Unknown]
  - Renal failure chronic [Not Recovered/Not Resolved]
  - Brain natriuretic peptide abnormal [Unknown]
  - Proteinuria [Unknown]
  - Influenza [Recovered/Resolved]
